FAERS Safety Report 5657760-1 (Version None)
Quarter: 2008Q1

REPORT INFORMATION
  Report Type: 
  Country: None (occurrence: None)
  Receive Date: 20080305
  Receipt Date: 20080215
  Transmission Date: 20080703
  Serious: Yes (Other)
  Sender: FDA-Public Use
  Company Number: US022720

PATIENT
  Age: 21 Year
  Sex: Female

DRUGS (1)
  1. ARSENIC TRIOXIDE [Suspect]
     Indication: ACUTE PROMYELOCYTIC LEUKAEMIA
     Dosage: SEE IMAGE
     Route: 042
     Dates: start: 20041201

REACTIONS (7)
  - CEREBRAL HAEMORRHAGE [None]
  - CHROMATOPSIA [None]
  - INTRACRANIAL PRESSURE INCREASED [None]
  - OPTIC NEUROPATHY [None]
  - STEM CELL TRANSPLANT [None]
  - THERAPEUTIC PRODUCT INEFFECTIVE [None]
  - TOXIC NEUROPATHY [None]
